FAERS Safety Report 5481017-5 (Version None)
Quarter: 2007Q4

REPORT INFORMATION
  Report Type: 
  Country: None (occurrence: None)
  Receive Date: 20071009
  Receipt Date: 20070927
  Transmission Date: 20080405
  Serious: Yes (Other)
  Sender: FDA-Public Use
  Company Number: US-PFIZER INC-2007067502

PATIENT
  Sex: Female
  Weight: 91.6 kg

DRUGS (9)
  1. LYRICA [Suspect]
     Indication: FIBROMYALGIA
     Dates: start: 20061001, end: 20060101
  2. NEURONTIN [Suspect]
     Indication: FIBROMYALGIA
  3. MORPHINE [Suspect]
  4. ELAVIL [Concomitant]
  5. VALIUM [Concomitant]
  6. VICODIN [Concomitant]
  7. PRILOSEC [Concomitant]
  8. LISINOPRIL [Concomitant]
  9. ALLEGRA-D [Concomitant]

REACTIONS (27)
  - APNOEA [None]
  - APPETITE DISORDER [None]
  - BACK PAIN [None]
  - CEREBROVASCULAR ACCIDENT [None]
  - CHEST PAIN [None]
  - CONTUSION [None]
  - DIZZINESS [None]
  - DYSPNOEA [None]
  - FATIGUE [None]
  - FIBROMYALGIA [None]
  - GAIT DISTURBANCE [None]
  - HAEMORRHAGE [None]
  - HEARING IMPAIRED [None]
  - INSOMNIA [None]
  - MEMORY IMPAIRMENT [None]
  - MUSCLE SPASMS [None]
  - MUSCULOSKELETAL STIFFNESS [None]
  - MYALGIA [None]
  - PAIN [None]
  - RESPIRATORY TRACT IRRITATION [None]
  - SINUS DISORDER [None]
  - SPEECH DISORDER [None]
  - SPINAL DISORDER [None]
  - SYNCOPE [None]
  - THINKING ABNORMAL [None]
  - TINNITUS [None]
  - WEIGHT FLUCTUATION [None]
